FAERS Safety Report 7943538-2 (Version None)
Quarter: 2011Q4

REPORT INFORMATION
  Report Type: 
  Country: None (occurrence: None)
  Receive Date: 20111128
  Receipt Date: 20110715
  Transmission Date: 20120403
  Serious: Yes (Other)
  Sender: FDA-Public Use
  Company Number: PHHY2011JP65676

PATIENT
  Sex: Female

DRUGS (7)
  1. MAGNESIUM SULFATE [Concomitant]
  2. CLINDAMYCIN PHOSPHATE [Suspect]
     Dosage: UNK UKN, UNK
     Route: 064
  3. MIRACLID [Concomitant]
     Route: 064
  4. FERRUM [Concomitant]
     Route: 064
  5. AMPICILLIN AND SULBACTAM [Suspect]
     Dosage: 6 G/DAY
     Route: 064
  6. RITODRINE HCL [Suspect]
     Dosage: 288 MG, (144-288 MG)
     Route: 064
  7. CEFEPIME HYDROCHLORIDE [Suspect]

REACTIONS (3)
  - FOETAL EXPOSURE DURING PREGNANCY [None]
  - PREMATURE BABY [None]
  - LOW BIRTH WEIGHT BABY [None]
